FAERS Safety Report 7806101-X (Version None)
Quarter: 2011Q4

REPORT INFORMATION
  Report Type: 
  Country: None (occurrence: None)
  Receive Date: 20111011
  Receipt Date: 20111005
  Transmission Date: 20120403
  Serious: No
  Sender: FDA-Public Use
  Company Number: US-PFIZER INC-2011238478

PATIENT
  Sex: Female

DRUGS (4)
  1. GABAPENTIN [Suspect]
     Indication: PAIN
     Dosage: UNK
     Route: 048
     Dates: start: 20030101, end: 20110101
  2. GABAPENTIN [Suspect]
     Indication: POST-TRAUMATIC STRESS DISORDER
  3. NEURONTIN [Suspect]
     Indication: PAIN
     Dosage: UNK
     Dates: start: 20110801
  4. NEURONTIN [Suspect]
     Indication: POST-TRAUMATIC STRESS DISORDER

REACTIONS (1)
  - PAIN [None]
